FAERS Safety Report 5089941-2 (Version None)
Quarter: 2006Q3

REPORT INFORMATION
  Report Type: 
  Country: None (occurrence: None)
  Receive Date: 20060823
  Receipt Date: 20060817
  Transmission Date: 20061208
  Serious: Yes (Death)
  Sender: FDA-Public Use
  Company Number: 2002-10-4405

PATIENT
  Age: 63 Year

DRUGS (3)
  1. THEOPHYLLINE ANHYDROUS EXTENDED RELEASE TABLET [Suspect]
     Indication: SUICIDE ATTEMPT
     Dosage: ORAL
     Route: 048
  2. ASPIRIN [Suspect]
     Indication: SUICIDE ATTEMPT
     Dosage: ORAL
  3. AMPHETAMINE TABLETS [Suspect]
     Indication: SUICIDE ATTEMPT
     Dosage: ORAL
     Route: 048

REACTIONS (1)
  - COMPLETED SUICIDE [None]
